FAERS Safety Report 24912903 (Version 1)
Quarter: 2025Q1

REPORT INFORMATION
  Report Type: Spontaneous
  Country: US (occurrence: US)
  Receive Date: 20250201
  Receipt Date: 20250201
  Transmission Date: 20250409
  Serious: No
  Sender: GLENMARK
  Company Number: US-GLENMARK PHARMACEUTICALS-2025GMK096972

PATIENT

DRUGS (1)
  1. RYALTRIS [Suspect]
     Active Substance: MOMETASONE FUROATE MONOHYDRATE\OLOPATADINE HYDROCHLORIDE
     Indication: Hypersensitivity
     Dosage: 1 DOSAGE FORM, BID (1 SPRAY IN EACH NOSTRIL TWICE A DAY)
     Route: 045

REACTIONS (6)
  - Sinusitis [Unknown]
  - Product use in unapproved indication [Unknown]
  - Product use issue [Unknown]
  - Device failure [Unknown]
  - Device occlusion [Unknown]
  - Wrong technique in product usage process [Unknown]
